FAERS Safety Report 22622830 (Version 1)
Quarter: 2023Q2

REPORT INFORMATION
  Report Type: Spontaneous
  Country: US (occurrence: US)
  Receive Date: 20230621
  Receipt Date: 20230621
  Transmission Date: 20230722
  Serious: No
  Sender: FDA-Public Use
  Company Number: US-JNJFOC-20230625794

PATIENT
  Age: 33 Year
  Sex: Male

DRUGS (2)
  1. MENS ROGAINE EXTRA STRENGTH [Suspect]
     Active Substance: MINOXIDIL
     Indication: Alopecia
     Dosage: TWICE A DAY OF 1 ML ONE TIME SO ITS 2MLS PER DAY
     Route: 065
  2. MENS ROGAINE EXTRA STRENGTH [Suspect]
     Active Substance: MINOXIDIL
     Dosage: TWICE A DAY OF 1 ML ONE TIME SO ITS 2MLS PER DAY
     Route: 065

REACTIONS (1)
  - Alopecia [Not Recovered/Not Resolved]
